FAERS Safety Report 5044309-X (Version None)
Quarter: 2006Q3

REPORT INFORMATION
  Report Type: 
  Country: None (occurrence: None)
  Receive Date: 20060706
  Receipt Date: 20060624
  Transmission Date: 20061208
  Serious: Yes (Hospitalization)
  Sender: FDA-Public Use
  Company Number: PHBS2006IN09417

PATIENT
  Age: 22 Year
  Sex: Female

DRUGS (4)
  1. VOVERAN [Suspect]
     Indication: PROCEDURAL PAIN
     Dosage: TWO INJECTION AT A GAP OF 15 HOURS
  2. RANITIDINE [Concomitant]
  3. PANTOPRAZOLE [Concomitant]
  4. KETAMINE HCL [Concomitant]

REACTIONS (2)
  - ABDOMINAL PAIN UPPER [None]
  - ILEUS PARALYTIC [None]
